FAERS Safety Report 20074859 (Version 1)
Quarter: 2021Q4

REPORT INFORMATION
  Report Type: Spontaneous
  Country: US (occurrence: None)
  Receive Date: 20211116
  Receipt Date: 20211116
  Transmission Date: 20220304
  Serious: Yes (Other)
  Sender: FDA-Public Use
  Company Number: None

PATIENT
  Age: 62 Year
  Sex: Male
  Weight: 92.25 kg

DRUGS (1)
  1. ATOMOXETINE HYDROCHLORIDE [Suspect]
     Active Substance: ATOMOXETINE HYDROCHLORIDE
     Indication: Attention deficit hyperactivity disorder
     Dates: start: 20210405, end: 20210511

REACTIONS (5)
  - Insomnia [None]
  - Gastrooesophageal reflux disease [None]
  - Pollakiuria [None]
  - Buried penis syndrome [None]
  - Inguinal hernia [None]

NARRATIVE: CASE EVENT DATE: 20210511
